FAERS Safety Report 23582631 (Version 1)
Quarter: 2024Q1

REPORT INFORMATION
  Report Type: Spontaneous
  Country: US (occurrence: None)
  Receive Date: 20240229
  Receipt Date: 20240229
  Transmission Date: 20240410
  Serious: Yes (Hospitalization, Other)
  Sender: FDA-Public Use
  Company Number: US-Emmaus Medical, Inc.-EMM202402-000091

PATIENT
  Age: 41 Year
  Sex: Female

DRUGS (4)
  1. ENDARI [Suspect]
     Active Substance: GLUTAMINE
     Indication: Sickle cell disease
     Dosage: 15 G (THREE PACKETS)
     Route: 048
     Dates: start: 2020, end: 2023
  2. ENDARI [Suspect]
     Active Substance: GLUTAMINE
     Dosage: 15 G (THREE PACKETS)
     Route: 048
     Dates: start: 202401
  3. TRAZODONE [Concomitant]
     Active Substance: TRAZODONE HYDROCHLORIDE
     Indication: Product used for unknown indication
     Dosage: UNKNOWN
     Route: 065
  4. PERCOCET [Concomitant]
     Active Substance: ACETAMINOPHEN\OXYCODONE HYDROCHLORIDE
     Indication: Product used for unknown indication
     Dosage: UNKNOWN
     Route: 065

REACTIONS (4)
  - Stress [Not Recovered/Not Resolved]
  - Sickle cell anaemia with crisis [Not Recovered/Not Resolved]
  - Product dose omission issue [Unknown]
  - Product administration interrupted [Unknown]

NARRATIVE: CASE EVENT DATE: 20230101
